FAERS Safety Report 5621996-6 (Version None)
Quarter: 2008Q1

REPORT INFORMATION
  Report Type: 
  Country: None (occurrence: None)
  Receive Date: 20080206
  Receipt Date: 20080121
  Transmission Date: 20080703
  Serious: Yes (Life-Threatening)
  Sender: FDA-Public Use
  Company Number: 2007JP000506

PATIENT
  Age: 72 Year
  Sex: Female

DRUGS (14)
  1. PROGRAF [Suspect]
     Indication: RHEUMATOID ARTHRITIS
     Dosage: 1.5 MG, UID/QD, ORAL, 0.5 MG, UID/QD, ORAL, 1.5 MG, UID/QD,ORAL, 1 MG, UID/QD, ORAL
     Route: 048
     Dates: start: 20060216, end: 20060304
  2. PROGRAF [Suspect]
     Indication: RHEUMATOID ARTHRITIS
     Dosage: 1.5 MG, UID/QD, ORAL, 0.5 MG, UID/QD, ORAL, 1.5 MG, UID/QD,ORAL, 1 MG, UID/QD, ORAL
     Route: 048
     Dates: start: 20060517, end: 20060523
  3. PROGRAF [Suspect]
     Indication: RHEUMATOID ARTHRITIS
     Dosage: 1.5 MG, UID/QD, ORAL, 0.5 MG, UID/QD, ORAL, 1.5 MG, UID/QD,ORAL, 1 MG, UID/QD, ORAL
     Route: 048
     Dates: start: 20060524, end: 20060929
  4. PROGRAF [Suspect]
     Indication: RHEUMATOID ARTHRITIS
     Dosage: 1.5 MG, UID/QD, ORAL, 0.5 MG, UID/QD, ORAL, 1.5 MG, UID/QD,ORAL, 1 MG, UID/QD, ORAL
     Route: 048
     Dates: start: 20060930
  5. BUFFERIN [Suspect]
     Indication: ANGINA PECTORIS
     Dosage: 81 MG, UID/QD, ORAL
     Route: 048
     Dates: end: 20060304
  6. HYDERGINE (DIHYDROERGOCRYPTINE MESILATE, DIHYDROERGOCORNINE MESILATE) [Concomitant]
  7. CALMDOWN (ALPRAZOLAM) TABLET [Concomitant]
  8. MEVALOTIN (PRAVASTATIN SODIUM) TABLET [Concomitant]
  9. AZULFIDINE EN TABLET [Concomitant]
  10. LUVOX (FLUVOXAMINE MALEATE) TABLET [Concomitant]
  11. RHYTHMY (RILMAZAFONE) TABLET [Concomitant]
  12. MAGNESIUM OXIDE (MAGNESIUM OXIDE) POWDER [Concomitant]
  13. RISPERDAL [Concomitant]
  14. LENDORMIN (BROTIZOLAM) TABLET [Concomitant]

REACTIONS (4)
  - CEREBRAL HAEMORRHAGE [None]
  - EPILEPSY [None]
  - INCORRECT DOSE ADMINISTERED [None]
  - LOSS OF CONSCIOUSNESS [None]
